FAERS Safety Report 21096519 (Version 6)
Quarter: 2024Q3

REPORT INFORMATION
  Report Type: Report from Study
  Country: US (occurrence: US)
  Receive Date: 20220718
  Receipt Date: 20240822
  Transmission Date: 20241017
  Serious: Yes (Other)
  Sender: TAKEDA
  Company Number: US-TAKEDA-2022TUS046017

PATIENT
  Age: 43 Year
  Sex: Male

DRUGS (5)
  1. ANTI-INHIBITOR COAGULANT COMPLEX [Suspect]
     Active Substance: ANTI-INHIBITOR COAGULANT COMPLEX
     Indication: Product used for unknown indication
     Dosage: 2769 INTERNATIONAL UNIT
     Route: 065
  2. ANTI-INHIBITOR COAGULANT COMPLEX [Suspect]
     Active Substance: ANTI-INHIBITOR COAGULANT COMPLEX
     Dosage: 7200 INTERNATIONAL UNIT
     Route: 065
  3. ANTI-INHIBITOR COAGULANT COMPLEX [Suspect]
     Active Substance: ANTI-INHIBITOR COAGULANT COMPLEX
     Dosage: 7407 INTERNATIONAL UNIT
     Route: 050
  4. ANTI-INHIBITOR COAGULANT COMPLEX [Suspect]
     Active Substance: ANTI-INHIBITOR COAGULANT COMPLEX
     Dosage: 5548 INTERNATIONAL UNIT
     Route: 050
  5. ANTI-INHIBITOR COAGULANT COMPLEX [Suspect]
     Active Substance: ANTI-INHIBITOR COAGULANT COMPLEX
     Dosage: 5548 INTERNATIONAL UNIT
     Route: 065

REACTIONS (12)
  - Mouth haemorrhage [Unknown]
  - Haemorrhage [Unknown]
  - Internal haemorrhage [Unknown]
  - Contusion [Unknown]
  - Haemarthrosis [Unknown]
  - Mouth swelling [Unknown]
  - Oral pain [Unknown]
  - Peripheral swelling [Unknown]
  - Pain in extremity [Unknown]
  - Fall [Unknown]
  - Pain [Unknown]
  - Buttock injury [Unknown]

NARRATIVE: CASE EVENT DATE: 20040415
